FAERS Safety Report 9509654 (Version 1)
Quarter: 2013Q3

REPORT INFORMATION
  Report Type: Spontaneous
  Country: US (occurrence: US)
  Receive Date: 20130909
  Receipt Date: 20130909
  Transmission Date: 20140515
  Serious: Yes (Hospitalization)
  Sender: FDA-Public Use
  Company Number: US-BRISTOL-MYERS SQUIBB COMPANY-18895706

PATIENT
  Age: 50 Year
  Sex: Male
  Weight: 90.7 kg

DRUGS (6)
  1. ABILIFY [Suspect]
     Dosage: DOSE REDUCED TO 5MG/D
  2. METFORMIN [Concomitant]
  3. SUCRALFATE [Concomitant]
  4. MODAFINIL [Concomitant]
  5. CYMBALTA [Concomitant]
  6. BABY ASPIRIN [Concomitant]

REACTIONS (2)
  - Myocardial infarction [Unknown]
  - Blood glucose increased [Unknown]
